FAERS Safety Report 7458139-2 (Version None)
Quarter: 2011Q2

REPORT INFORMATION
  Report Type: 
  Country: None (occurrence: None)
  Receive Date: 20110504
  Receipt Date: 20110426
  Transmission Date: 20111010
  Serious: Yes (Disabling)
  Sender: FDA-Public Use
  Company Number: PHHY2011US28322

PATIENT
  Sex: Female
  Weight: 113.83 kg

DRUGS (7)
  1. SYNTHROID [Concomitant]
     Indication: HYPOTHYROIDISM
     Dosage: 0.15 MG, QD
     Route: 048
  2. NUVIGIL [Concomitant]
     Indication: NARCOLEPSY
     Dosage: 500 MG, QD
     Route: 048
  3. LUNESTA [Concomitant]
     Indication: SLEEP DISORDER
     Dosage: 1 MG, QD
     Route: 048
  4. VICODIN [Concomitant]
     Indication: PAIN
     Dosage: UNK UKN, QID (IN THE MORNING)
     Route: 048
  5. LIDODERM [Concomitant]
     Indication: PAIN
     Dosage: UNK UKN, UNK
     Route: 062
  6. GILENYA [Suspect]
     Indication: MULTIPLE SCLEROSIS
     Dosage: 0.5 MG, QD
     Route: 048
     Dates: start: 20110322
  7. LEXAPRO [Concomitant]
     Indication: DEPRESSION
     Dosage: 200 MG, QD
     Route: 048

REACTIONS (2)
  - FATIGUE [None]
  - NAUSEA [None]
